FAERS Safety Report 18029072 (Version 1)
Quarter: 2020Q3

REPORT INFORMATION
  Report Type: Spontaneous
  Country: US (occurrence: US)
  Receive Date: 20200715
  Receipt Date: 20200715
  Transmission Date: 20201103
  Serious: No
  Sender: FDA-Public Use
  Company Number: None

PATIENT

DRUGS (1)
  1. ZIPRASIDONE 20MG/ML VIALS [Suspect]
     Active Substance: ZIPRASIDONE MESYLATE

REACTIONS (2)
  - Product packaging issue [None]
  - Product label confusion [None]
